FAERS Safety Report 11764047 (Version 1)
Quarter: 2015Q4

REPORT INFORMATION
  Report Type: Spontaneous
  Country: US (occurrence: US)
  Receive Date: 20151120
  Receipt Date: 20151120
  Transmission Date: 20160304
  Serious: No
  Sender: FDA-Public Use
  Company Number: US-ELI_LILLY_AND_COMPANY-US201303009894

PATIENT
  Age: 81 Year
  Sex: Female

DRUGS (1)
  1. FORTEO [Suspect]
     Active Substance: TERIPARATIDE
     Indication: OSTEOPOROSIS
     Dosage: UNK, QD
     Route: 065
     Dates: start: 20130306, end: 20130428

REACTIONS (10)
  - Eructation [Unknown]
  - Flatulence [Unknown]
  - Faeces hard [Unknown]
  - Nausea [Unknown]
  - Tremor [Unknown]
  - Constipation [Unknown]
  - Dysphonia [Unknown]
  - Somnolence [Unknown]
  - Fatigue [Unknown]
  - Rhinorrhoea [Unknown]

NARRATIVE: CASE EVENT DATE: 20130306
